FAERS Safety Report 9069084 (Version 1)
Quarter: 2013Q1

REPORT INFORMATION
  Report Type: Not Available
  Country: SE (occurrence: SE)
  Receive Date: 20130128
  Receipt Date: 20130128
  Transmission Date: 20140127
  Serious: Yes (Hospitalization)
  Sender: FDA-Public Use
  Company Number: SE-PURDUE-GBR-2013-0012998

PATIENT
  Age: 79 Year
  Sex: Male

DRUGS (15)
  1. NORSPAN [Suspect]
     Indication: BACK PAIN
     Route: 062
  2. TRAMADOL [Suspect]
     Indication: BACK PAIN
     Route: 042
  3. LAMICTAL [Concomitant]
  4. TRAVATAN [Concomitant]
  5. METOPROLOL [Concomitant]
  6. ENALAPRIL [Concomitant]
  7. SIMVASTATIN [Concomitant]
  8. TIMOSAN [Concomitant]
  9. NITROLINGUAL [Concomitant]
  10. PANODIL [Concomitant]
  11. BEHEPAN [Concomitant]
     Dosage: 1 MG, UNK
  12. OMEPRAZOL                          /00661201/ [Concomitant]
     Dosage: 10 MG, UNK
  13. TROMBYL [Concomitant]
     Dosage: 75 MG, UNK
  14. IMDUR [Concomitant]
     Dosage: 30 MG, UNK
  15. PERSANTIN [Concomitant]
     Dosage: 200 MG, UNK

REACTIONS (2)
  - Hallucination [Recovered/Resolved]
  - Confusional state [Unknown]
